FAERS Safety Report 12393575 (Version 1)
Quarter: 2016Q2

REPORT INFORMATION
  Report Type: Spontaneous
  Country: US (occurrence: None)
  Receive Date: 20160520
  Receipt Date: 20160520
  Transmission Date: 20160815
  Serious: Yes (Other)
  Sender: FDA-Public Use
  Company Number: None

PATIENT
  Age: 58 Year
  Sex: Female
  Weight: 68.04 kg

DRUGS (1)
  1. OMEPRAZOLE USP 20MG, 20M DR. REDDY^S OMEPRAOLE [Suspect]
     Active Substance: OMEPRAZOLE
     Indication: GASTRITIS
     Route: 048
     Dates: start: 20071231, end: 20160331

REACTIONS (2)
  - Abdominal discomfort [None]
  - Blood urine present [None]

NARRATIVE: CASE EVENT DATE: 20150802
